FAERS Safety Report 14815834 (Version 2)
Quarter: 2018Q2

REPORT INFORMATION
  Report Type: Spontaneous
  Country: BR (occurrence: BR)
  Receive Date: 20180426
  Receipt Date: 20180518
  Transmission Date: 20180711
  Serious: Yes (Other)
  Sender: FDA-Public Use
  Company Number: BR-PFIZER INC-2018153912

PATIENT
  Age: 34 Year
  Sex: Female

DRUGS (2)
  1. DEPO-PROVERA [Concomitant]
     Active Substance: MEDROXYPROGESTERONE ACETATE
     Dosage: UNK
     Dates: start: 201710
  2. ADVIL [Suspect]
     Active Substance: IBUPROFEN
     Indication: PAIN
     Dosage: 400 MG, AS NEEDED (WHEN SHE FELT PAIN)
     Dates: start: 2012

REACTIONS (5)
  - Product taste abnormal [Recovered/Resolved]
  - Product physical issue [Recovered/Resolved]
  - Dysgeusia [Recovered/Resolved]
  - Poor quality drug administered [Recovered/Resolved]
  - Burn oral cavity [Recovered/Resolved]

NARRATIVE: CASE EVENT DATE: 20180411
